FAERS Safety Report 8373526-6 (Version None)
Quarter: 2012Q2

REPORT INFORMATION
  Report Type: 
  Country: None (occurrence: None)
  Receive Date: 20120521
  Receipt Date: 20110725
  Transmission Date: 20120825
  Serious: No
  Sender: FDA-Public Use
  Company Number: US-TEVA-2011003897

PATIENT
  Sex: Male
  Weight: 97.61 kg

DRUGS (3)
  1. TREANDA [Suspect]
     Indication: CHRONIC LYMPHOCYTIC LEUKAEMIA
     Route: 042
     Dates: start: 20110201, end: 20110715
  2. TRIAMTERENE AND HYDROCHLOROTHIAZIDE [Concomitant]
     Dates: start: 20110624
  3. PREDNISONE [Concomitant]
     Route: 048
     Dates: start: 20110101, end: 20110701

REACTIONS (3)
  - PRURITUS [None]
  - SKIN EXFOLIATION [None]
  - SCAB [None]
